FAERS Safety Report 15602138 (Version 3)
Quarter: 2020Q3

REPORT INFORMATION
  Report Type: Spontaneous
  Country: US (occurrence: US)
  Receive Date: 20181109
  Receipt Date: 20200710
  Transmission Date: 20201102
  Serious: Yes (Other)
  Sender: FDA-Public Use
  Company Number: US-PFIZER INC-2018459051

PATIENT
  Age: 67 Year
  Sex: Female

DRUGS (1)
  1. XELJANZ XR [Suspect]
     Active Substance: TOFACITINIB CITRATE
     Dosage: 11 MG

REACTIONS (1)
  - Cataract [Unknown]
